FAERS Safety Report 15826065 (Version 1)
Quarter: 2019Q1

REPORT INFORMATION
  Report Type: Spontaneous
  Country: DE (occurrence: DE)
  Receive Date: 20190115
  Receipt Date: 20190115
  Transmission Date: 20190417
  Serious: Yes (Other)
  Sender: FDA-Public Use
  Company Number: PHHY2012DE119588

PATIENT
  Age: 21 Year
  Sex: Male

DRUGS (2)
  1. DEXAMETHASONE. [Suspect]
     Active Substance: DEXAMETHASONE
     Indication: MYASTHENIA GRAVIS
     Dosage: UNK
     Route: 065
  2. AZATHIOPRINE. [Suspect]
     Active Substance: AZATHIOPRINE
     Indication: MYASTHENIA GRAVIS
     Dosage: 125 MG, UNK
     Route: 048
     Dates: start: 2004

REACTIONS (3)
  - Macule [Unknown]
  - Melanocytic naevus [Unknown]
  - Rash [Unknown]

NARRATIVE: CASE EVENT DATE: 2006
